FAERS Safety Report 19051011 (Version 1)
Quarter: 2021Q1

REPORT INFORMATION
  Report Type: Spontaneous
  Country: US (occurrence: US)
  Receive Date: 20210323
  Receipt Date: 20210323
  Transmission Date: 20210420
  Serious: Yes (Hospitalization, Other)
  Sender: FDA-Public Use
  Company Number: None

PATIENT
  Sex: Female

DRUGS (1)
  1. BOTOX [Suspect]
     Active Substance: ONABOTULINUMTOXINA
     Indication: MIGRAINE WITHOUT AURA
     Dosage: ?          OTHER DOSE:100 UNITS;OTHER FREQUENCY:Q 90;OTHER ROUTE:INTO SCALP MUSCLE?
     Dates: start: 20190328

REACTIONS (2)
  - COVID-19 [None]
  - Breast cancer [None]
